FAERS Safety Report 5129395-0 (Version None)
Quarter: 2006Q4

REPORT INFORMATION
  Report Type: 
  Country: None (occurrence: None)
  Receive Date: 20061012
  Receipt Date: 20060926
  Transmission Date: 20070319
  Serious: Yes (Hospitalization)
  Sender: FDA-Public Use
  Company Number: 8019253

PATIENT
  Age: 7 Year
  Sex: Male
  Weight: 17 kg

DRUGS (2)
  1. KEPPRA [Suspect]
     Indication: EPILEPSY
     Dosage: 750 MG /D
     Dates: start: 20060301
  2. KEPPRA [Suspect]
     Indication: EPILEPSY
     Dosage: 500 MG /D

REACTIONS (1)
  - HYPOTHERMIA [None]
